FAERS Safety Report 20651687 (Version 1)
Quarter: 2022Q1

REPORT INFORMATION
  Report Type: Spontaneous
  Country: US (occurrence: US)
  Receive Date: 20220330
  Receipt Date: 20220330
  Transmission Date: 20220424
  Serious: No
  Sender: FDA-Public Use
  Company Number: US-SANOFI-01037720

PATIENT
  Age: 73 Year
  Sex: Male

DRUGS (2)
  1. LANTUS SOLOSTAR [Suspect]
     Active Substance: INSULIN GLARGINE
     Indication: Type 2 diabetes mellitus
     Dosage: DRUG STRUCTURE DOSAGE : 25-28 UNITS, BID
  2. HUMALOG [Concomitant]
     Active Substance: INSULIN LISPRO
     Dosage: 3 TIMES A DAY WITH MEALS, TID

REACTIONS (1)
  - Inappropriate schedule of product administration [Unknown]
